FAERS Safety Report 13993994 (Version 10)
Quarter: 2023Q1

REPORT INFORMATION
  Report Type: Report from Study
  Country: CA (occurrence: CA)
  Receive Date: 20170920
  Receipt Date: 20230215
  Transmission Date: 20230418
  Serious: Yes (Other)
  Sender: FDA-Public Use
  Company Number: PHHY2012CA001812

PATIENT
  Age: 58 Year
  Sex: Male

DRUGS (5)
  1. SANDOSTATIN LAR DEPOT [Suspect]
     Active Substance: OCTREOTIDE ACETATE
     Indication: Carcinoid tumour
     Dosage: 30 MG, QMO
     Route: 030
     Dates: start: 20111108
  2. SANDOSTATIN LAR DEPOT [Suspect]
     Active Substance: OCTREOTIDE ACETATE
  3. SANDOSTATIN LAR DEPOT [Suspect]
     Active Substance: OCTREOTIDE ACETATE
  4. SUNITINIB [Suspect]
     Active Substance: SUNITINIB
     Indication: Product used for unknown indication
     Dosage: UNK
     Route: 065
  5. ZANTAC [Concomitant]
     Active Substance: RANITIDINE HYDROCHLORIDE
     Indication: Product used for unknown indication
     Dosage: UNK UNK, PRN
     Route: 065

REACTIONS (30)
  - Nephrolithiasis [Unknown]
  - Syncope [Unknown]
  - Blood urine present [Unknown]
  - Blood pressure increased [Unknown]
  - Cough [Unknown]
  - Productive cough [Unknown]
  - Muscular weakness [Unknown]
  - Insomnia [Unknown]
  - Epistaxis [Unknown]
  - Influenza [Unknown]
  - Aphonia [Unknown]
  - Sleep apnoea syndrome [Unknown]
  - Gait disturbance [Unknown]
  - Gastrooesophageal reflux disease [Unknown]
  - Vertigo [Unknown]
  - Feeling cold [Unknown]
  - Malaise [Unknown]
  - Fatigue [Unknown]
  - Heart rate decreased [Unknown]
  - Abdominal pain upper [Not Recovered/Not Resolved]
  - Jaundice [Unknown]
  - Dehydration [Unknown]
  - Abdominal pain [Recovered/Resolved]
  - Diarrhoea [Not Recovered/Not Resolved]
  - Dizziness [Unknown]
  - Abdominal pain [Recovered/Resolved]
  - Vomiting [Unknown]
  - Nausea [Unknown]
  - Product availability issue [Unknown]
  - Drug ineffective [Unknown]

NARRATIVE: CASE EVENT DATE: 20111201
